FAERS Safety Report 6666253-4 (Version None)
Quarter: 2010Q1

REPORT INFORMATION
  Report Type: 
  Country: None (occurrence: None)
  Receive Date: 20100331
  Receipt Date: 20100317
  Transmission Date: 20100710
  Serious: Yes (Hospitalization)
  Sender: FDA-Public Use
  Company Number: KV200801115

PATIENT
  Age: 43 Year
  Sex: Female
  Weight: 127 kg

DRUGS (22)
  1. MORPHINE SULFATE [Suspect]
     Indication: PAIN
     Dosage: 15 MG, QD, ORAL
     Route: 048
     Dates: start: 19960101
  2. MORPHINE SULFATE [Suspect]
     Indication: PAIN
     Dosage: 30 MG, TID, ORAL
     Route: 048
  3. KADIAN [Concomitant]
  4. NEXIUM [Concomitant]
  5. OXYCODONE WITH APAP (OXYCODONE HYDROCHLORIDE, PARACETAMOL) [Concomitant]
  6. HYDROCODONE W/APAP (HYDROCODONE, PARACETAMOL) [Concomitant]
  7. REQUIP [Concomitant]
  8. AMBIEN [Concomitant]
  9. XANAX [Concomitant]
  10. TOPAMAX [Concomitant]
  11. CYMBALTA [Concomitant]
  12. BACLOFEN [Concomitant]
  13. LODINE [Concomitant]
  14. MVI (VITAMINS NOS) [Concomitant]
  15. CALCIUM (CALCIUM) [Concomitant]
  16. SENOKOT /00142201/ (SENNA ALEXANDRINA) [Concomitant]
  17. CEPHALEXIN /00145501/ (CEFALEXIN) [Concomitant]
  18. CEFAZOLIN [Concomitant]
  19. FIORICET [Concomitant]
  20. HYOSCYAMINE (HYOSCYAMINE) [Concomitant]
  21. DILAUDID [Concomitant]
  22. ACTIGALL (UROSDEOXYCHOLIC ACID) [Concomitant]

REACTIONS (30)
  - ABDOMINAL DISTENSION [None]
  - ABDOMINAL PAIN UPPER [None]
  - CHEST PAIN [None]
  - COLONIC POLYP [None]
  - CONSTIPATION [None]
  - DIARRHOEA HAEMORRHAGIC [None]
  - DIZZINESS [None]
  - DRUG WITHDRAWAL SYNDROME [None]
  - DYSPHAGIA [None]
  - DYSPNOEA [None]
  - ENDOMETRIOSIS [None]
  - FLATULENCE [None]
  - HAEMORRHOIDS [None]
  - HEART RATE INCREASED [None]
  - HYPERHIDROSIS [None]
  - HYPERTENSION [None]
  - INSOMNIA [None]
  - INTERNAL HERNIA [None]
  - INTESTINAL OBSTRUCTION [None]
  - MUCOUS STOOLS [None]
  - NAUSEA [None]
  - OEDEMA PERIPHERAL [None]
  - PAIN [None]
  - PANIC ATTACK [None]
  - PRODUCT QUALITY ISSUE [None]
  - SLEEP APNOEA SYNDROME [None]
  - SPINAL COLUMN STENOSIS [None]
  - STRESS URINARY INCONTINENCE [None]
  - VOMITING [None]
  - WEIGHT INCREASED [None]
